FAERS Safety Report 8050352-9 (Version None)
Quarter: 2012Q1

REPORT INFORMATION
  Report Type: 
  Country: None (occurrence: None)
  Receive Date: 20120117
  Receipt Date: 20120113
  Transmission Date: 20120608
  Serious: Yes (Life-Threatening)
  Sender: FDA-Public Use
  Company Number: JP-ABBOTT-11P-087-0843137-00

PATIENT
  Sex: Male
  Weight: 51 kg

DRUGS (13)
  1. MESALAMINE [Concomitant]
     Indication: CROHN'S DISEASE
     Dosage: 3000MG DAILY
     Route: 048
     Dates: end: 20110608
  2. RABEPRAZOLE SODIUM [Concomitant]
     Indication: PROPHYLAXIS
  3. REBAMIPIDE [Concomitant]
     Indication: GASTRITIS PROPHYLAXIS
     Route: 048
     Dates: end: 20110608
  4. HUMIRA [Suspect]
     Indication: CROHN'S DISEASE
     Route: 058
     Dates: start: 20110111, end: 20110111
  5. BERBERINE CHLORIDE HYDRATE/GERANIUM HERB EXTRACT [Concomitant]
     Indication: CROHN'S DISEASE
     Dosage: 3 DOSAGE FORMS DAILY
     Route: 048
     Dates: end: 20110608
  6. LOXOPROFEN SODIUM HYDRATE [Concomitant]
     Indication: CROHN'S DISEASE
  7. HUMIRA [Suspect]
     Dates: start: 20110208, end: 20110516
  8. LOXOPROFEN SODIUM HYDRATE [Concomitant]
     Indication: PYREXIA
     Route: 048
     Dates: end: 20110608
  9. LOPERAMIDE HCL [Concomitant]
     Indication: CROHN'S DISEASE
  10. RABEPRAZOLE SODIUM [Concomitant]
     Indication: GASTROOESOPHAGEAL REFLUX DISEASE
     Route: 048
     Dates: end: 20110608
  11. LOPERAMIDE HCL [Concomitant]
     Indication: DIARRHOEA
     Route: 048
     Dates: end: 20110608
  12. HUMIRA [Suspect]
     Dates: start: 20110125, end: 20110125
  13. CLOSTRIDIUM BUTYRICUM [Concomitant]
     Indication: CROHN'S DISEASE
     Dosage: 6 DOSAGE FORM DAILY
     Route: 048
     Dates: end: 20110608

REACTIONS (1)
  - INFECTIOUS PERITONITIS [None]
